FAERS Safety Report 17073547 (Version 1)
Quarter: 2019Q4

REPORT INFORMATION
  Report Type: Spontaneous
  Country: CA (occurrence: CA)
  Receive Date: 20191126
  Receipt Date: 20191126
  Transmission Date: 20200122
  Serious: Yes (Hospitalization, Other)
  Sender: FDA-Public Use
  Company Number: CA-ALKEM LABORATORIES LIMITED-CA-ALKEM-2019-10155

PATIENT
  Age: 11 Year
  Sex: Male

DRUGS (1)
  1. METHYLPHENIDATE HYDROCHLORIDE. [Suspect]
     Active Substance: METHYLPHENIDATE HYDROCHLORIDE
     Indication: ATTENTION DEFICIT/HYPERACTIVITY DISORDER
     Dosage: 36 MILLIGRAM, QD
     Route: 048

REACTIONS (7)
  - Movement disorder [Unknown]
  - Drug interaction [Unknown]
  - Compulsive lip biting [Unknown]
  - Hypophagia [Unknown]
  - Dysarthria [Unknown]
  - Pharyngitis [Unknown]
  - Torticollis [Recovered/Resolved]

NARRATIVE: CASE EVENT DATE: 20021230
